FAERS Safety Report 5093102-0 (Version None)
Quarter: 2006Q3

REPORT INFORMATION
  Report Type: 
  Country: None (occurrence: None)
  Receive Date: 20060828
  Receipt Date: 20060814
  Transmission Date: 20061208
  Serious: Yes (Other)
  Sender: FDA-Public Use
  Company Number: 200602094

PATIENT
  Age: 48 Year
  Sex: Female
  Weight: 50 kg

DRUGS (2)
  1. BOTOX [Suspect]
     Indication: SKIN WRINKLING
     Dosage: SINGLE, INTRAMUSCULAR
     Route: 030
     Dates: start: 20060221, end: 20060221
  2. WELLBUTRIN [Concomitant]

REACTIONS (15)
  - ANGIONEUROTIC OEDEMA [None]
  - CONNECTIVE TISSUE DISORDER [None]
  - CUSHINGOID [None]
  - DRUG INEFFECTIVE [None]
  - FACIAL PAIN [None]
  - HYPERCORTICOIDISM [None]
  - HYPERSENSITIVITY [None]
  - HYPERTENSION [None]
  - IATROGENIC INJURY [None]
  - INJECTION SITE ERYTHEMA [None]
  - INJECTION SITE INFLAMMATION [None]
  - INJECTION SITE SWELLING [None]
  - MELKERSSON-ROSENTHAL SYNDROME [None]
  - PANNICULITIS [None]
  - SUBCUTANEOUS NODULE [None]
